FAERS Safety Report 17923052 (Version 3)
Quarter: 2020Q3

REPORT INFORMATION
  Report Type: Spontaneous
  Country: ES (occurrence: ES)
  Receive Date: 20200622
  Receipt Date: 20200706
  Transmission Date: 20201103
  Serious: Yes (Death, Life-Threatening, Hospitalization, Other)
  Sender: FDA-Public Use
  Company Number: ES-PFIZER INC-2020236826

PATIENT
  Age: 69 Year
  Sex: Male

DRUGS (26)
  1. VANCOMYCIN HCL [Suspect]
     Active Substance: VANCOMYCIN HYDROCHLORIDE
     Indication: CLOSTRIDIUM DIFFICILE COLITIS
     Dosage: UNK
     Route: 054
     Dates: start: 20180707
  2. AMIKACIN. [Suspect]
     Active Substance: AMIKACIN
     Indication: TRACHEOBRONCHITIS
     Dosage: UNK
     Dates: start: 20180627
  3. COLISTIN [Suspect]
     Active Substance: COLISTIN
     Indication: PSEUDOMONAS INFECTION
  4. TIGECYCLINE. [Suspect]
     Active Substance: TIGECYCLINE
     Indication: KLEBSIELLA INFECTION
     Dosage: UNK
     Dates: start: 20180815
  5. METRONIDAZOLE. [Suspect]
     Active Substance: METRONIDAZOLE
     Indication: CLOSTRIDIUM DIFFICILE COLITIS
     Dosage: UNK
     Route: 042
     Dates: start: 20180707
  6. TOBRAMYCIN. [Suspect]
     Active Substance: TOBRAMYCIN
     Indication: STENOTROPHOMONAS INFECTION
  7. TEICOPLANIN [Suspect]
     Active Substance: TEICOPLANIN
     Indication: STREPTOCOCCAL BACTERAEMIA
  8. CIPROFLOXACIN. [Suspect]
     Active Substance: CIPROFLOXACIN
     Indication: PSEUDOMONAS INFECTION
     Dosage: UNK
     Route: 042
     Dates: start: 20180627
  9. CEFTAZIDIME. [Suspect]
     Active Substance: CEFTAZIDIME
     Indication: TRACHEOBRONCHITIS
     Dosage: UNK
     Dates: start: 20180723
  10. TEICOPLANIN [Suspect]
     Active Substance: TEICOPLANIN
     Indication: DEVICE RELATED INFECTION
     Dosage: UNK
     Dates: start: 20180712
  11. VANCOMYCIN HCL [Suspect]
     Active Substance: VANCOMYCIN HYDROCHLORIDE
     Dosage: UNK
     Route: 048
     Dates: start: 20180707
  12. COTRIMOXAZOLE [Suspect]
     Active Substance: SULFAMETHOXAZOLE\TRIMETHOPRIM
     Indication: TRACHEOBRONCHITIS
  13. COLISTIN [Suspect]
     Active Substance: COLISTIN
     Indication: TRACHEOBRONCHITIS
     Dosage: UNK
     Route: 042
     Dates: start: 20180703
  14. MEROPENEM. [Suspect]
     Active Substance: MEROPENEM
     Indication: PSEUDOMONAS INFECTION
     Dosage: UNK
     Dates: start: 20180612
  15. MEROPENEM. [Suspect]
     Active Substance: MEROPENEM
     Indication: DEVICE RELATED INFECTION
  16. COTRIMOXAZOLE [Suspect]
     Active Substance: SULFAMETHOXAZOLE\TRIMETHOPRIM
     Indication: STENOTROPHOMONAS INFECTION
     Dosage: UNK
     Route: 042
     Dates: start: 20180723
  17. GANCICLOVIR. [Suspect]
     Active Substance: GANCICLOVIR
     Indication: CYTOMEGALOVIRUS COLITIS
     Dosage: UNK
     Dates: start: 20180808
  18. FOSCARNET [Suspect]
     Active Substance: FOSCARNET
     Indication: CYTOMEGALOVIRUS COLITIS
     Dosage: UNK
     Dates: start: 20180808
  19. TIGECYCLINE. [Suspect]
     Active Substance: TIGECYCLINE
     Indication: ENTEROBACTER BACTERAEMIA
     Dosage: UNK
     Dates: start: 20180813
  20. TIGECYCLINE. [Suspect]
     Active Substance: TIGECYCLINE
     Indication: POSTOPERATIVE WOUND INFECTION
  21. MEROPENEM. [Suspect]
     Active Substance: MEROPENEM
     Indication: POSTOPERATIVE WOUND INFECTION
     Dosage: UNK
     Dates: start: 20180606
  22. MEROPENEM. [Suspect]
     Active Substance: MEROPENEM
     Indication: ENTEROBACTER BACTERAEMIA
     Dosage: UNK
     Dates: start: 20180813
  23. AMIKACIN. [Suspect]
     Active Substance: AMIKACIN
     Indication: PSEUDOMONAS INFECTION
     Dosage: UNK
     Dates: start: 20180703
  24. CEFTAZIDIME. [Suspect]
     Active Substance: CEFTAZIDIME
     Indication: STENOTROPHOMONAS INFECTION
  25. TOBRAMYCIN. [Suspect]
     Active Substance: TOBRAMYCIN
     Indication: TRACHEOBRONCHITIS
     Dosage: UNK
     Route: 055
     Dates: start: 20180723
  26. CEFEPIME [Suspect]
     Active Substance: CEFEPIME HYDROCHLORIDE
     Indication: PSEUDOMONAS INFECTION
     Dosage: UNK
     Dates: start: 20180627

REACTIONS (2)
  - Flavobacterium infection [Fatal]
  - Septic shock [Fatal]

NARRATIVE: CASE EVENT DATE: 20180823
